FAERS Safety Report 5001809-6 (Version None)
Quarter: 2006Q2

REPORT INFORMATION
  Report Type: 
  Country: None (occurrence: None)
  Receive Date: 20060515
  Receipt Date: 20060509
  Transmission Date: 20061013
  Serious: Yes (Hospitalization)
  Sender: FDA-Public Use
  Company Number: US-GLAXOSMITHKLINE-A0604858A

PATIENT
  Age: 51 Year
  Sex: Female

DRUGS (8)
  1. LAMICTAL [Suspect]
     Indication: BIPOLAR DISORDER
     Dosage: 25MG PER DAY
     Route: 048
     Dates: start: 20060301, end: 20060401
  2. SEROQUEL [Concomitant]
  3. DOXEPIN [Concomitant]
  4. ATIVAN [Concomitant]
  5. ZELNORM [Concomitant]
  6. UNSPECIFIED MEDICATION [Concomitant]
  7. NITROQUICK [Concomitant]
  8. NORCO [Concomitant]

REACTIONS (9)
  - ARRHYTHMIA [None]
  - HEADACHE [None]
  - LARYNGITIS [None]
  - MYALGIA [None]
  - NAIL DISCOLOURATION [None]
  - NERVOUSNESS [None]
  - OEDEMA [None]
  - TREMOR [None]
  - VASCULAR INJURY [None]
